FAERS Safety Report 7425057-5 (Version None)
Quarter: 2011Q2

REPORT INFORMATION
  Report Type: 
  Country: None (occurrence: None)
  Receive Date: 20110420
  Receipt Date: 20110406
  Transmission Date: 20111010
  Serious: Yes (Disabling, Other)
  Sender: FDA-Public Use
  Company Number: FR-AMGEN-FRASP2011019762

PATIENT
  Age: 72 Year
  Sex: Male

DRUGS (2)
  1. ENBREL [Suspect]
     Indication: PRODUCT USED FOR UNKNOWN INDICATION
     Dosage: 50 MG, WEEKLY
     Route: 058
     Dates: start: 20040501, end: 20110101
  2. VOLTARENE                          /00372302/ [Concomitant]
     Dosage: 75 MG, 1X/DAY
     Route: 048
     Dates: end: 20110101

REACTIONS (2)
  - METASTATIC GASTRIC CANCER [None]
  - METASTASES TO LIVER [None]
